FAERS Safety Report 24561638 (Version 1)
Quarter: 2024Q4

REPORT INFORMATION
  Report Type: Spontaneous
  Country: BR (occurrence: BR)
  Receive Date: 20241029
  Receipt Date: 20241029
  Transmission Date: 20250115
  Serious: Yes (Hospitalization, Other)
  Sender: GLAXOSMITHKLINE
  Company Number: BR-GLAXOSMITHKLINE INC-BR2024AMR132324

PATIENT

DRUGS (7)
  1. NUCALA [Suspect]
     Active Substance: MEPOLIZUMAB
     Indication: Asthma
     Dosage: 1 PUFF(S),Q4W,100MGML1CARP+CAN+AG
     Dates: start: 202409
  2. SYMBICORT [Concomitant]
     Active Substance: BUDESONIDE\FORMOTEROL FUMARATE DIHYDRATE
     Indication: Asthma
     Dosage: 2 PUFF(S), TID,6/200 MCG
  3. SPIRIVA [Concomitant]
     Active Substance: TIOTROPIUM BROMIDE MONOHYDRATE
     Indication: Asthma
     Dosage: 2 PUFF(S), QD,2.6 MG
  4. ALBUTEROL [Concomitant]
     Active Substance: ALBUTEROL
     Indication: Asthma
     Dosage: 4 PUFF(S),EVERY 4 HOURS
  5. MONTELUKAST SODIUM [Concomitant]
     Active Substance: MONTELUKAST SODIUM
     Indication: Asthma
     Dosage: 1 DF, QD,10 MG
  6. TOPIRAMATE [Concomitant]
     Active Substance: TOPIRAMATE
     Indication: Headache
     Dosage: 1 DF, QD,25 MG
  7. TOPIRAMATE [Concomitant]
     Active Substance: TOPIRAMATE
     Dosage: 1 DF, QD,50 MG

REACTIONS (2)
  - Pneumonia [Recovered/Resolved]
  - Asthma [Recovered/Resolved]
